FAERS Safety Report 9389006 (Version 1)
Quarter: 2013Q3

REPORT INFORMATION
  Report Type: Spontaneous
  Country: FR (occurrence: FR)
  Receive Date: 20130708
  Receipt Date: 20130708
  Transmission Date: 20140515
  Serious: Yes (Death)
  Sender: FDA-Public Use
  Company Number: FR-PFIZER INC-2013196525

PATIENT
  Age: 67 Year
  Sex: Male

DRUGS (2)
  1. ARACYTINE [Suspect]
     Indication: ACUTE MYELOMONOCYTIC LEUKAEMIA
     Dosage: 3646 MG, 1X/DAY
     Route: 041
     Dates: start: 20130409, end: 20130409
  2. EVOLTRA [Suspect]
     Indication: ACUTE MYELOMONOCYTIC LEUKAEMIA
     Dosage: 22.7 MG, 1X/DAY
     Route: 041
     Dates: start: 20130409, end: 20130411

REACTIONS (3)
  - Aplasia [Fatal]
  - Sepsis [Fatal]
  - Jaundice [Fatal]
